FAERS Safety Report 6958351-2 (Version None)
Quarter: 2010Q3

REPORT INFORMATION
  Report Type: 
  Country: None (occurrence: None)
  Receive Date: 20100831
  Receipt Date: 20100819
  Transmission Date: 20110219
  Serious: Yes (Hospitalization, Other)
  Sender: FDA-Public Use
  Company Number: GB-ROCHE-486335

PATIENT
  Sex: Female
  Weight: 68.2 kg

DRUGS (20)
  1. TRASTUZUMAB [Suspect]
     Indication: BREAST CANCER
     Dosage: LOADING DOSE.
     Route: 042
     Dates: start: 20040618, end: 20040618
  2. TRASTUZUMAB [Suspect]
     Dosage: MAINTENANCE DOSE. THERAPY PERMANENTLY DISCONTINUED; FORM: FLUID.
     Route: 042
     Dates: start: 20040709, end: 20050615
  3. GABAPENTIN [Concomitant]
  4. MANEVAC [Concomitant]
  5. ACETAMINOPHEN [Concomitant]
  6. DIHYDROCODEINE TARTRATE [Concomitant]
  7. TEMAZEPAM [Concomitant]
  8. CLONIDINE HYDROCHLORIDE [Concomitant]
  9. METFORMIN HCL [Concomitant]
  10. GLICLAZIDE [Concomitant]
  11. AMITRIPTYLINE HCL [Concomitant]
  12. ALBUTEROL SULFATE AUTOHALER [Concomitant]
  13. FRUSEMIDE [Concomitant]
     Dates: start: 20061125
  14. SALMETEROL [Concomitant]
     Dosage: FREQUENCY REPORTED AS BD
  15. ASPIRIN [Concomitant]
     Dosage: DRUG NAME REPORTED AS ASPRIN EC
     Dates: start: 20051124
  16. DILTIAZEM HYDROCHLORIDE [Concomitant]
     Dates: start: 20051124
  17. ATORVASTATIN CALCIUM [Concomitant]
     Dosage: FREQUENCY REPORTED: BD
     Dates: start: 20040925
  18. AMITRIPTYLINE HCL [Concomitant]
  19. METFORMIN HCL [Concomitant]
     Dosage: FREQUENCY REPORTED AS BD
  20. BECLOMETHASONE DIPROPIONATE [Concomitant]

REACTIONS (3)
  - ANGINA PECTORIS [None]
  - CARDIAC FAILURE [None]
  - CARDIAC FAILURE CONGESTIVE [None]
